FAERS Safety Report 7742341-6 (Version None)
Quarter: 2011Q3

REPORT INFORMATION
  Report Type: 
  Country: None (occurrence: None)
  Receive Date: 20110912
  Receipt Date: 20100308
  Transmission Date: 20111222
  Serious: No
  Sender: FDA-Public Use
  Company Number: US-BAYER-201016326NA

PATIENT

DRUGS (2)
  1. LEVITRA [Suspect]
  2. LAMISIL [Concomitant]

REACTIONS (1)
  - DRUG INEFFECTIVE [None]
